FAERS Safety Report 8257916-8 (Version None)
Quarter: 2012Q2

REPORT INFORMATION
  Report Type: 
  Country: None (occurrence: None)
  Receive Date: 20120404
  Receipt Date: 20120330
  Transmission Date: 20120825
  Serious: No
  Sender: FDA-Public Use
  Company Number: US-PFIZER INC-2012082185

PATIENT
  Sex: Female

DRUGS (1)
  1. LATANOPROST [Suspect]
     Indication: INTRAOCULAR PRESSURE INCREASED
     Dosage: 1 GTT, 1X/DAY IN LEFT EYE
     Route: 047

REACTIONS (3)
  - CIRCUMSTANCE OR INFORMATION CAPABLE OF LEADING TO MEDICATION ERROR [None]
  - EYE PAIN [None]
  - DRUG DISPENSING ERROR [None]
